FAERS Safety Report 5668519-3 (Version None)
Quarter: 2008Q1

REPORT INFORMATION
  Report Type: 
  Country: None (occurrence: None)
  Receive Date: 20080315
  Receipt Date: 20080228
  Transmission Date: 20080703
  Serious: No
  Sender: FDA-Public Use
  Company Number: US-ABBOTT-08P-163-0440313-00

PATIENT
  Sex: Female
  Weight: 55.388 kg

DRUGS (4)
  1. HUMIRA [Suspect]
     Indication: CROHN'S DISEASE
     Route: 058
     Dates: start: 20080228, end: 20080228
  2. HUMIRA [Suspect]
     Route: 058
     Dates: start: 20080214, end: 20080214
  3. HUMIRA [Suspect]
     Route: 058
  4. LEVOFLOXACIN [Concomitant]
     Indication: CROHN'S DISEASE
     Route: 048
     Dates: start: 20050101

REACTIONS (2)
  - INJECTION SITE RASH [None]
  - INJECTION SITE REACTION [None]
